FAERS Safety Report 7866692-X (Version None)
Quarter: 2011Q4

REPORT INFORMATION
  Report Type: 
  Country: None (occurrence: None)
  Receive Date: 20111028
  Receipt Date: 20111019
  Transmission Date: 20120403
  Serious: Yes (Hospitalization)
  Sender: FDA-Public Use
  Company Number: CN-SANOFI-AVENTIS-2011SA069420

PATIENT
  Age: 54 Year
  Sex: Female

DRUGS (4)
  1. OXALIPLATIN [Suspect]
     Indication: GASTRIC CANCER
     Route: 041
     Dates: start: 20081001, end: 20081001
  2. LEUCOVORIN CALCIUM [Concomitant]
     Indication: GASTRIC CANCER
     Route: 065
     Dates: start: 20081001, end: 20081001
  3. DEXTROSE [Concomitant]
     Dosage: 500 ML OF 5% GLUCOSE SOLUTION
     Route: 042
  4. FLUOROURACIL [Concomitant]
     Indication: GASTRIC CANCER
     Route: 065
     Dates: start: 20081001, end: 20081001

REACTIONS (2)
  - SKIN EXFOLIATION [None]
  - DERMATITIS EXFOLIATIVE [None]
